FAERS Safety Report 7526049-8 (Version None)
Quarter: 2011Q2

REPORT INFORMATION
  Report Type: 
  Country: None (occurrence: None)
  Receive Date: 20110603
  Receipt Date: 20110603
  Transmission Date: 20111010
  Serious: Yes (Death)
  Sender: FDA-Public Use
  Company Number: None

PATIENT
  Sex: Male

DRUGS (1)
  1. TARCEVA [Suspect]
     Indication: PANCREATIC CARCINOMA
     Dosage: TARCEVA 100MG DAILY PO
     Route: 053
     Dates: start: 20110518, end: 20110531

REACTIONS (1)
  - PANCREATIC CARCINOMA [None]
